FAERS Safety Report 23924352 (Version 2)
Quarter: 2024Q2

REPORT INFORMATION
  Report Type: Spontaneous
  Country: US (occurrence: US)
  Receive Date: 20240531
  Receipt Date: 20240607
  Transmission Date: 20240716
  Serious: Yes (Other)
  Sender: FDA-Public Use
  Company Number: US-HIKMA PHARMACEUTICALS-US-H14001-24-04303

PATIENT
  Age: 20 Year
  Sex: Female

DRUGS (9)
  1. BLEOMYCIN [Suspect]
     Active Substance: BLEOMYCIN SULFATE
     Indication: Teratoma
     Dosage: 15 U/M2, DAYS 1, 8, 15 (21-DAY CYCLE)
     Route: 065
  2. BLEOMYCIN [Suspect]
     Active Substance: BLEOMYCIN SULFATE
     Indication: Germ cell neoplasm
  3. CISPLATIN [Suspect]
     Active Substance: CISPLATIN
     Dosage: NOT APPLICABLE (COMPANY^S SUSPECT PRODUCT NOT ADMINISTERED)
  4. ETOPOSIDE [Suspect]
     Active Substance: ETOPOSIDE
     Dosage: NOT APPLICABLE (COMPANY^S SUSPECT PRODUCT NOT ADMINISTERED)
  5. ETOPOSIDE [Suspect]
     Active Substance: ETOPOSIDE
     Indication: Teratoma
     Dosage: 1050 MILLIGRAM/SQ. METER, QCY (50 MG/SQ. METER; DAYS 1-21)
     Route: 048
  6. ETOPOSIDE [Suspect]
     Active Substance: ETOPOSIDE
     Indication: Metastases to lung
     Dosage: 500 MILLIGRAM/SQ. METER, QCY (100 MILLIGRAM/SQUARE METER DAYS 1-5 (21-DAY CYCLE))
     Route: 042
  7. ETOPOSIDE [Suspect]
     Active Substance: ETOPOSIDE
     Indication: Germ cell cancer
  8. CISPLATIN [Suspect]
     Active Substance: CISPLATIN
     Indication: Germ cell neoplasm
     Dosage: 100 MILLIGRAM/SQ. METER, QCY(20MILLIGRAM/SQ. METER, DAYS 1-5, (21-DAY CYCLE))
     Route: 017
  9. CISPLATIN [Suspect]
     Active Substance: CISPLATIN
     Indication: Teratoma

REACTIONS (8)
  - KMT2A gene mutation [Unknown]
  - Leukaemia [Unknown]
  - B-cell type acute leukaemia [Unknown]
  - Neutropenia [Unknown]
  - Thrombocytopenia [Unknown]
  - Constipation [Unknown]
  - Nausea [Unknown]
  - Vomiting [Unknown]
